FAERS Safety Report 20444576 (Version 1)
Quarter: 2022Q1

REPORT INFORMATION
  Report Type: Spontaneous
  Country: PT (occurrence: PT)
  Receive Date: 20220208
  Receipt Date: 20220208
  Transmission Date: 20220423
  Serious: Yes (Other)
  Sender: FDA-Public Use
  Company Number: None

PATIENT
  Age: 73 Year
  Sex: Male

DRUGS (6)
  1. SULFAMETHOXAZOLE\TRIMETHOPRIM [Suspect]
     Active Substance: SULFAMETHOXAZOLE\TRIMETHOPRIM
     Indication: Infected skin ulcer
     Dosage: UNIT DOSE 2 DOSAGE FORM,TREATMENT OF INFECTED LEG ULCER,COMPRESSED
     Route: 048
     Dates: start: 20211230, end: 20220106
  2. FUROSEMIDE [Concomitant]
     Active Substance: FUROSEMIDE
     Dosage: COMPRESSED
     Route: 048
  3. APIXABAN [Concomitant]
     Active Substance: APIXABAN
     Route: 048
  4. LEVOTHYROXINE SODIUM [Concomitant]
     Active Substance: LEVOTHYROXINE SODIUM
     Route: 048
  5. GABAPENTIN [Concomitant]
     Active Substance: GABAPENTIN
     Route: 048
  6. ENALAPRIL [Concomitant]
     Active Substance: ENALAPRIL
     Dosage: COMPRESSED
     Route: 048

REACTIONS (1)
  - Hepatotoxicity [Recovering/Resolving]

NARRATIVE: CASE EVENT DATE: 20220103
